FAERS Safety Report 20375811 (Version 1)
Quarter: 2022Q1

REPORT INFORMATION
  Report Type: Spontaneous
  Country: US (occurrence: US)
  Receive Date: 20220125
  Receipt Date: 20220125
  Transmission Date: 20220423
  Serious: No
  Sender: FDA-Public Use
  Company Number: US-UPSHER-SMITH LABORATORIES, LLC-2021USL00777

PATIENT
  Age: 72 Year
  Sex: Female
  Weight: 63.492 kg

DRUGS (16)
  1. HALOPERIDOL [Suspect]
     Active Substance: HALOPERIDOL
     Indication: Psychotic disorder
     Dosage: 1 MG
     Route: 048
  2. HALOPERIDOL [Suspect]
     Active Substance: HALOPERIDOL
     Dosage: 0.5 MG
     Route: 048
     Dates: end: 202110
  3. HALOPERIDOL [Suspect]
     Active Substance: HALOPERIDOL
     Dosage: 1 MG
     Route: 048
     Dates: start: 202110
  4. HALOPERIDOL [Suspect]
     Active Substance: HALOPERIDOL
     Dosage: UNK
     Route: 048
     Dates: start: 1989
  5. HALDOL [Suspect]
     Active Substance: HALOPERIDOL
     Route: 048
  6. RISPERDAL [Suspect]
     Active Substance: RISPERIDONE
     Dosage: UNK
  7. RISPERDAL [Suspect]
     Active Substance: RISPERIDONE
     Dosage: UNK
  8. LITHIUM [Concomitant]
     Active Substance: LITHIUM
  9. ZOLOFT [Concomitant]
     Active Substance: SERTRALINE HYDROCHLORIDE
  10. AMLODIPINE [Concomitant]
     Active Substance: AMLODIPINE BESYLATE
  11. LORAZEPAM [Concomitant]
     Active Substance: LORAZEPAM
  12. GLIMEPIRIDE [Concomitant]
     Active Substance: GLIMEPIRIDE
  13. SENNA [Concomitant]
     Active Substance: SENNA LEAF\SENNOSIDES\SENNOSIDES A AND B
  14. OMEPRAZOLE [Concomitant]
     Active Substance: OMEPRAZOLE
  15. PROBIOTICS NOS [Concomitant]
     Active Substance: PROBIOTICS NOS
  16. VITMAIN C [Concomitant]

REACTIONS (7)
  - Tremor [Not Recovered/Not Resolved]
  - Somatic symptom disorder [Recovered/Resolved]
  - Memory impairment [Unknown]
  - Nervous system disorder [Unknown]
  - Fear [Recovered/Resolved]
  - Flashback [Recovered/Resolved]
  - Anxiety [Recovered/Resolved]

NARRATIVE: CASE EVENT DATE: 20211001
